FAERS Safety Report 5327392-3 (Version None)
Quarter: 2007Q2

REPORT INFORMATION
  Report Type: 
  Country: None (occurrence: None)
  Receive Date: 20070511
  Receipt Date: 20070503
  Transmission Date: 20071010
  Serious: Yes (Hospitalization, Other)
  Sender: FDA-Public Use
  Company Number: 2007SP004825

PATIENT
  Age: 47 Year
  Sex: Female

DRUGS (5)
  1. ASMANEX TWISTHALER [Suspect]
     Indication: ASTHMA
     Dosage: PO
     Route: 048
     Dates: start: 20070122, end: 20070226
  2. RIBAVIRIN [Suspect]
     Indication: HEPATITIS C
     Dosage: 6 FD; QD;
     Dates: start: 20061215, end: 20070228
  3. RIBAVIRIN [Suspect]
     Indication: HEPATITIS C
     Dosage: 6 FD; QD;
     Dates: start: 20070307
  4. PEGASYS [Suspect]
     Indication: HEPATITIS C
     Dates: start: 20061215, end: 20070228
  5. PEGASYS [Suspect]
     Indication: HEPATITIS C
     Dates: start: 20070307

REACTIONS (11)
  - ANOREXIA [None]
  - ASTHENIA [None]
  - DRUG HYPERSENSITIVITY [None]
  - DRY SKIN [None]
  - PAIN [None]
  - SKIN FISSURES [None]
  - SUBCUTANEOUS ABSCESS [None]
  - SWELLING FACE [None]
  - WEIGHT DECREASED [None]
  - WOUND [None]
  - WOUND SECRETION [None]
